FAERS Safety Report 9214252 (Version 1)
Quarter: 2013Q2

REPORT INFORMATION
  Report Type: Spontaneous
  Country: US (occurrence: None)
  Receive Date: 20130404
  Receipt Date: 20130404
  Transmission Date: 20140414
  Serious: No
  Sender: FDA-Public Use
  Company Number: None

PATIENT
  Age: 42 Year
  Sex: Female

DRUGS (6)
  1. MONTELUKAST [Suspect]
     Indication: ASTHMA
     Dosage: ONE DAILY
     Dates: start: 20121001
  2. MONTELUKAST [Suspect]
     Indication: RHINITIS ALLERGIC
     Dosage: ONE DAILY
     Dates: start: 20121001
  3. LOSARTAN [Concomitant]
  4. MICROGESTIN [Concomitant]
  5. OMEPRAZOLE [Concomitant]
  6. ADVAIR DISKUS [Concomitant]

REACTIONS (2)
  - Urticaria [None]
  - Product substitution issue [None]
